FAERS Safety Report 8816531 (Version 1)
Quarter: 2012Q4

REPORT INFORMATION
  Report Type: Spontaneous
  Country: US (occurrence: None)
  Receive Date: 20120927
  Receipt Date: 20120927
  Transmission Date: 20130627
  Serious: Yes (Death, Hospitalization)
  Sender: FDA-Public Use
  Company Number: IMP_05998_2012

PATIENT
  Age: 16 Year
  Sex: Female

DRUGS (1)
  1. MINOCYCLINE [Suspect]
     Indication: ACNE
     Dosage: (DF) (3 weeks until not continuing)

REACTIONS (44)
  - Cardiogenic shock [None]
  - Pyrexia [None]
  - Malaise [None]
  - Fatigue [None]
  - Lymphadenopathy [None]
  - Urticaria [None]
  - Rash maculo-papular [None]
  - Face oedema [None]
  - Oedema peripheral [None]
  - Localised oedema [None]
  - Leukocytosis [None]
  - Eosinophilia [None]
  - Syncope [None]
  - Chest pain [None]
  - Nausea [None]
  - Orthopnoea [None]
  - Tachycardia [None]
  - Hypotension [None]
  - Ventricular hypokinesia [None]
  - Respiratory distress [None]
  - Cardiac arrest [None]
  - Cardiac failure acute [None]
  - Multi-organ failure [None]
  - Liver function test abnormal [None]
  - Renal failure acute [None]
  - Peripheral ischaemia [None]
  - Vasculitis [None]
  - Cardiomyopathy [None]
  - Eosinophilic myocarditis [None]
  - Drug reaction with eosinophilia and systemic symptoms [None]
  - Hyperbilirubinaemia [None]
  - Pancreatitis [None]
  - Respiratory failure [None]
  - Septic shock [None]
  - Bacteraemia [None]
  - Fungaemia [None]
  - Wound dehiscence [None]
  - Pulmonary embolism [None]
  - Acute hepatic failure [None]
  - General physical health deterioration [None]
  - Mental status changes [None]
  - Dialysis [None]
  - Catabolic state [None]
  - Pancreatic necrosis [None]
